FAERS Safety Report 20300324 (Version 3)
Quarter: 2022Q1

REPORT INFORMATION
  Report Type: Report from Study
  Country: AU (occurrence: None)
  Receive Date: 20220105
  Receipt Date: 20220119
  Transmission Date: 20220423
  Serious: Yes (Hospitalization)
  Sender: FDA-Public Use
  Company Number: AU-ROCHE-2994846

PATIENT
  Age: 72 Year
  Sex: Female
  Weight: 52.9 kg

DRUGS (17)
  1. ATEZOLIZUMAB [Suspect]
     Active Substance: ATEZOLIZUMAB
     Indication: Renal cell carcinoma
     Dosage: ON 03/DEC/2021, RECEIVED MOST RECENT DOSE OF ATEZOLIZUMAB BEFORE EVENT ONSET.
     Route: 041
     Dates: start: 20210204
  2. CABOZANTINIB [Suspect]
     Active Substance: CABOZANTINIB
     Indication: Renal cell carcinoma
     Dosage: ON 20/DEC/2021, RECEIVED MOST RECENT DOSE OF CABOZANTINIB (20 MG) BEFORE EVENT ONSET.
     Route: 048
     Dates: start: 20210204
  3. SERTRALINE [Concomitant]
     Active Substance: SERTRALINE HYDROCHLORIDE
     Indication: Anxiety
     Dosage: YES
     Route: 048
     Dates: start: 2007
  4. ROSUVASTATIN [Concomitant]
     Active Substance: ROSUVASTATIN
     Indication: Hypercholesterolaemia
     Dosage: YES
     Route: 048
     Dates: start: 2017
  5. IRBESARTAN [Concomitant]
     Active Substance: IRBESARTAN
     Indication: Hypertension
     Dosage: NO
     Route: 048
     Dates: start: 2017, end: 20211130
  6. MS CONTIN [Concomitant]
     Active Substance: MORPHINE SULFATE
     Indication: Cough
     Dosage: YES
     Route: 048
     Dates: start: 202010
  7. ACETAMINOPHEN [Concomitant]
     Active Substance: ACETAMINOPHEN
     Indication: Prophylaxis
     Dosage: GIVEN FOR PROPHYLAXIS IS YES ;ONGOING: YES
     Route: 048
     Dates: start: 20210204
  8. LORATADINE [Concomitant]
     Active Substance: LORATADINE
     Indication: Prophylaxis
     Dosage: GIVEN FOR PROPHYLAXIS IS YES ;ONGOING: YES
     Route: 048
     Dates: start: 20210204
  9. PETER MAC MOUTHWASH [SODIUM BICARBONATE;SODIUM CHLORIDE] [Concomitant]
     Indication: Mucosal inflammation
     Dosage: DRUG DOSE FIRST ADMINISTERED IS 1 OTHER ;ONGOING: YES
     Route: 048
     Dates: start: 20210325
  10. DEVICE\XYLITOL [Concomitant]
     Active Substance: DEVICE\XYLITOL
     Indication: Dry mouth
     Dosage: DRUG DOSE FIRST ADMINISTERED IS 1 OTHER ;ONGOING: YES
     Route: 048
     Dates: start: 20210408
  11. OMEPRAZOLE [Concomitant]
     Active Substance: OMEPRAZOLE
     Indication: Gastrooesophageal reflux disease
     Dosage: YES
     Route: 048
     Dates: start: 20210304
  12. METOCLOPRAMIDE [Concomitant]
     Active Substance: METOCLOPRAMIDE
     Indication: Flatulence
     Dosage: YES
     Route: 048
     Dates: start: 20210802
  13. VALACYCLOVIR [Concomitant]
     Active Substance: VALACYCLOVIR HYDROCHLORIDE
     Indication: Oral herpes
     Dosage: YES
     Route: 048
     Dates: start: 20210910
  14. ASTRAZENECA COVID-19 VACCINE [Concomitant]
     Active Substance: AZD-1222
     Dates: start: 20210630
  15. ASTRAZENECA COVID-19 VACCINE [Concomitant]
     Active Substance: AZD-1222
     Dates: start: 20210922
  16. MORPHINE HYDROCHLORIDE [Concomitant]
     Active Substance: MORPHINE HYDROCHLORIDE
     Indication: Pain
     Route: 048
     Dates: start: 20211223
  17. MOVICOL [Concomitant]
     Active Substance: POLYETHYLENE GLYCOL 3350\POTASSIUM CHLORIDE\SODIUM BICARBONATE\SODIUM CHLORIDE
     Indication: Constipation
     Dosage: 4 OTHER
     Route: 048
     Dates: start: 20220105

REACTIONS (2)
  - Urinary tract infection [Recovered/Resolved]
  - Bacteraemia [Recovered/Resolved]

NARRATIVE: CASE EVENT DATE: 20211227
